FAERS Safety Report 24434049 (Version 2)
Quarter: 2025Q1

REPORT INFORMATION
  Report Type: Spontaneous
  Country: JP (occurrence: JP)
  Receive Date: 20241014
  Receipt Date: 20250122
  Transmission Date: 20250409
  Serious: Yes (Death, Other)
  Sender: MERCK
  Company Number: JP-MSD-2410JPN001272J

PATIENT
  Age: 57 Year
  Sex: Male

DRUGS (4)
  1. KEYTRUDA [Suspect]
     Active Substance: PEMBROLIZUMAB
     Indication: Renal cell carcinoma
     Route: 065
     Dates: start: 20230808, end: 2023
  2. LENVATINIB MESYLATE [Suspect]
     Active Substance: LENVATINIB MESYLATE
     Indication: Renal cell carcinoma
     Route: 065
     Dates: start: 20230808, end: 20230821
  3. LENVATINIB MESYLATE [Suspect]
     Active Substance: LENVATINIB MESYLATE
     Route: 065
     Dates: start: 20231012, end: 20231102
  4. LENVATINIB MESYLATE [Suspect]
     Active Substance: LENVATINIB MESYLATE
     Route: 065
     Dates: start: 20231118, end: 20231210

REACTIONS (9)
  - Death [Fatal]
  - Malignant neoplasm progression [Unknown]
  - Altered state of consciousness [Unknown]
  - Immune-mediated adverse reaction [Unknown]
  - Extraocular muscle disorder [Unknown]
  - Diarrhoea [Unknown]
  - Liver disorder [Unknown]
  - Haemoglobin decreased [Unknown]
  - Blood lactate dehydrogenase increased [Unknown]

NARRATIVE: CASE EVENT DATE: 20230101
